FAERS Safety Report 10084791 (Version 1)
Quarter: 2014Q2

REPORT INFORMATION
  Report Type: Spontaneous
  Country: BR (occurrence: BR)
  Receive Date: 20140417
  Receipt Date: 20140417
  Transmission Date: 20141212
  Serious: Yes (Hospitalization, Other)
  Sender: FDA-Public Use
  Company Number: BR-ASTRAZENECA-2014SE25296

PATIENT
  Age: 64 Year
  Sex: Female
  Weight: 75 kg

DRUGS (26)
  1. ATENOLOL [Suspect]
     Indication: HYPERTENSION
     Route: 048
     Dates: start: 2014, end: 2014
  2. NEXIUM [Suspect]
     Indication: ULCER
     Route: 048
     Dates: start: 20140408, end: 20140408
  3. NEXIUM [Suspect]
     Indication: HIATUS HERNIA
     Route: 048
     Dates: start: 20140408, end: 20140408
  4. NEXIUM [Suspect]
     Indication: GASTRITIS
     Route: 048
     Dates: start: 20140408, end: 20140408
  5. NEXIUM [Suspect]
     Indication: HELICOBACTER INFECTION
     Route: 048
     Dates: start: 20140408, end: 20140408
  6. NEXIUM [Suspect]
     Indication: ULCER
     Dosage: DAILY
     Route: 048
  7. NEXIUM [Suspect]
     Indication: HIATUS HERNIA
     Dosage: DAILY
     Route: 048
  8. NEXIUM [Suspect]
     Indication: GASTRITIS
     Dosage: DAILY
     Route: 048
  9. NEXIUM [Suspect]
     Indication: HELICOBACTER INFECTION
     Dosage: DAILY
     Route: 048
  10. OMEPRAZOLE [Suspect]
     Indication: ULCER
     Route: 048
  11. OMEPRAZOLE [Suspect]
     Indication: HIATUS HERNIA
     Route: 048
  12. OMEPRAZOLE [Suspect]
     Indication: GASTRITIS
     Route: 048
  13. OMEPRAZOLE [Suspect]
     Indication: HELICOBACTER INFECTION
     Route: 048
  14. OMEPRAZOLE [Suspect]
     Indication: ULCER
     Route: 048
  15. OMEPRAZOLE [Suspect]
     Indication: HIATUS HERNIA
     Route: 048
  16. OMEPRAZOLE [Suspect]
     Indication: GASTRITIS
     Route: 048
  17. OMEPRAZOLE [Suspect]
     Indication: HELICOBACTER INFECTION
     Route: 048
  18. HYDROCHLOROTHIAZIDE (NON AZ PRODUCT) [Suspect]
     Indication: HYPERTENSION
     Route: 048
     Dates: start: 1996
  19. HYDROCHLOROTHIAZIDE (NON AZ PRODUCT) [Suspect]
     Indication: RENAL DISORDER
     Route: 048
     Dates: start: 1996
  20. HYDROCHLOROTHIAZIDE (NON AZ PRODUCT) [Suspect]
     Indication: HYPERTENSION
     Route: 048
  21. HYDROCHLOROTHIAZIDE (NON AZ PRODUCT) [Suspect]
     Indication: RENAL DISORDER
     Route: 048
  22. ATENOLOL + LOSARTAN +BUMETANIDE+AMLODIPINE [Suspect]
     Indication: HYPERTENSION
     Dosage: ATENOLOL 25MG+ LOSARTAN 50MG +BUMETANIDE+AMLODIPINE 2.5MG (COMPOUNDED MEDICATION), DAILY
     Route: 048
     Dates: start: 2014
  23. ATORVASTATIN [Suspect]
     Indication: BLOOD CHOLESTEROL INCREASED
     Route: 048
     Dates: end: 2014
  24. DIGEPLUS [Concomitant]
     Indication: DYSPEPSIA
     Dosage: DAILY
     Route: 048
     Dates: start: 201401
  25. GAVISCON [Concomitant]
     Route: 048
  26. LOSARTAN [Concomitant]
     Indication: HYPERTENSION
     Route: 048
     Dates: start: 2014, end: 2014

REACTIONS (16)
  - Decreased appetite [Recovered/Resolved]
  - Abdominal mass [Not Recovered/Not Resolved]
  - Blood pressure increased [Recovered/Resolved]
  - Dysgeusia [Recovered/Resolved]
  - Nausea [Unknown]
  - Ulcer [Not Recovered/Not Resolved]
  - Hiatus hernia [Not Recovered/Not Resolved]
  - Gastritis [Not Recovered/Not Resolved]
  - Oesophagitis [Not Recovered/Not Resolved]
  - Helicobacter infection [Not Recovered/Not Resolved]
  - Cold sweat [Unknown]
  - Faeces discoloured [Unknown]
  - Blood cholesterol increased [Not Recovered/Not Resolved]
  - Off label use [Not Recovered/Not Resolved]
  - Drug ineffective [Recovered/Resolved]
  - Intentional product misuse [Not Recovered/Not Resolved]
